FAERS Safety Report 5186378-2 (Version None)
Quarter: 2006Q4

REPORT INFORMATION
  Report Type: 
  Country: None (occurrence: None)
  Receive Date: 20061213
  Receipt Date: 20061130
  Transmission Date: 20070319
  Serious: Yes (Hospitalization)
  Sender: FDA-Public Use
  Company Number: 2006136813

PATIENT
  Age: 68 Year
  Sex: Male
  Weight: 59.8 kg

DRUGS (6)
  1. SUTENT [Suspect]
     Indication: RENAL CELL CARCINOMA STAGE UNSPECIFIED
     Dosage: 25 MG (25 MG, 1 IN 1 D), ORAL
     Route: 048
     Dates: start: 20060118
  2. ZOLEDRONIC ACID [Concomitant]
  3. SALINE MIXTURE (AMMONIUM ACETATE, CAMPHOR WATER, SODIUM CITRATE, SODIU [Concomitant]
  4. ZOLPIDEM TARTRATE [Concomitant]
  5. CANDESARTAN CILEXETIL [Concomitant]
  6. DICLOFENAC SODIUM [Concomitant]

REACTIONS (12)
  - ATELECTASIS [None]
  - BRONCHIAL OBSTRUCTION [None]
  - COMPUTERISED TOMOGRAM ABNORMAL [None]
  - CONDITION AGGRAVATED [None]
  - DISEASE PROGRESSION [None]
  - HAEMOTHORAX [None]
  - ILL-DEFINED DISORDER [None]
  - MALAISE [None]
  - NEUTROPHIL COUNT DECREASED [None]
  - PLEURAL EFFUSION [None]
  - TUMOUR HAEMORRHAGE [None]
  - WHITE BLOOD CELL COUNT DECREASED [None]
